FAERS Safety Report 4394917-4 (Version None)
Quarter: 2004Q3

REPORT INFORMATION
  Report Type: 
  Country: None (occurrence: None)
  Receive Date: 20040712
  Receipt Date: 20040705
  Transmission Date: 20050211
  Serious: Yes (Other)
  Sender: FDA-Public Use
  Company Number: BR-GLAXOSMITHKLINE-A0517513A

PATIENT
  Age: 1 Year
  Weight: 10 kg

DRUGS (5)
  1. AMOXICILLIN AND CLAVULANATE POTASSIUM [Suspect]
     Indication: ILL-DEFINED DISORDER
     Dosage: 2.5ML TWICE PER DAY
     Route: 048
     Dates: start: 20040604, end: 20040614
  2. ACETYLCYSTEINE [Concomitant]
  3. TUAMINOHEPTANE [Concomitant]
  4. FLUDROCORTISONE ACETATE [Concomitant]
  5. UNKNOWN MEDICATION [Concomitant]

REACTIONS (1)
  - THROMBOCYTOPENIA [None]
